FAERS Safety Report 8852184 (Version 3)
Quarter: 2013Q4

REPORT INFORMATION
  Report Type: Spontaneous
  Country: US (occurrence: None)
  Receive Date: 20120426
  Receipt Date: 20131226
  Transmission Date: 20140711
  Serious: Yes (Other)
  Sender: FDA-Public Use
  Company Number: PHEH2012US001487

PATIENT
  Age: 66 Year
  Sex: Female

DRUGS (1)
  1. GILENYA [Suspect]
     Indication: MULTIPLE SCLEROSIS
     Route: 048
     Dates: start: 20110627

REACTIONS (6)
  - Productive cough [None]
  - Rhinorrhoea [None]
  - Eye pain [None]
  - Headache [None]
  - Visual impairment [None]
  - Vision blurred [None]
